FAERS Safety Report 8190043-7 (Version None)
Quarter: 2012Q1

REPORT INFORMATION
  Report Type: 
  Country: None (occurrence: None)
  Receive Date: 20120307
  Receipt Date: 20120301
  Transmission Date: 20120608
  Serious: Yes (Other)
  Sender: FDA-Public Use
  Company Number: US-SANOFI-AVENTIS-2012SA013991

PATIENT
  Age: 72 Year
  Sex: Female

DRUGS (1)
  1. PLAQUENIL [Suspect]
     Indication: RHEUMATOID ARTHRITIS
     Dosage: TOOK MEDICATION FOR 3 -4 YEARS AND DISCONTINUED 25 YEARS AGO.
     Route: 065

REACTIONS (5)
  - MACULOPATHY [None]
  - VISUAL IMPAIRMENT [None]
  - VITREOUS DETACHMENT [None]
  - AGE-RELATED MACULAR DEGENERATION [None]
  - TOXICITY TO VARIOUS AGENTS [None]
